FAERS Safety Report 6978991-4 (Version None)
Quarter: 2010Q3

REPORT INFORMATION
  Report Type: 
  Country: None (occurrence: None)
  Receive Date: 20100913
  Receipt Date: 20100901
  Transmission Date: 20110219
  Serious: Yes (Other)
  Sender: FDA-Public Use
  Company Number: ZA-PFIZER INC-2010110692

PATIENT
  Age: 17 Year

DRUGS (1)
  1. LYRICA [Suspect]
     Indication: CSF TEST ABNORMAL
     Dosage: 150 MG, 2X/DAY
     Route: 048

REACTIONS (2)
  - INSOMNIA [None]
  - PSYCHOMOTOR HYPERACTIVITY [None]
